FAERS Safety Report 8935065 (Version 5)
Quarter: 2018Q3

REPORT INFORMATION
  Report Type: Spontaneous
  Country: JP (occurrence: JP)
  Receive Date: 20121129
  Receipt Date: 20180827
  Transmission Date: 20181010
  Serious: Yes (Death, Other)
  Sender: FDA-Public Use
  Company Number: JP-OTSUKA-JP-2012-16882

PATIENT
  Age: 83 Year
  Sex: Female

DRUGS (2)
  1. SAMSCA [Suspect]
     Active Substance: TOLVAPTAN
     Indication: PRODUCT USED FOR UNKNOWN INDICATION
     Dosage: 7.5 MG, QD
     Route: 048
     Dates: start: 20120123, end: 20120123
  2. SAMSCA [Suspect]
     Active Substance: TOLVAPTAN
     Dosage: 7.5 MG, QD
     Route: 048
     Dates: start: 20120121, end: 20120121

REACTIONS (3)
  - Altered state of consciousness [Fatal]
  - Brain stem haemorrhage [Fatal]
  - Hypernatraemia [Fatal]

NARRATIVE: CASE EVENT DATE: 20120202
